FAERS Safety Report 8201197-8 (Version None)
Quarter: 2012Q1

REPORT INFORMATION
  Report Type: 
  Country: None (occurrence: None)
  Receive Date: 20120312
  Receipt Date: 20120302
  Transmission Date: 20120608
  Serious: Yes (Hospitalization, Other)
  Sender: FDA-Public Use
  Company Number: PHHY2012FR019104

PATIENT
  Sex: Female

DRUGS (10)
  1. ZOLPIDEM [Concomitant]
  2. FOLIC ACID [Concomitant]
  3. VOLTAREN [Suspect]
     Dosage: UNK
     Route: 048
     Dates: end: 20111013
  4. UMULINE [Concomitant]
  5. NOVORAPID [Concomitant]
  6. EUPRESSYL [Concomitant]
  7. BISOPROLOL FUMARATE [Concomitant]
  8. AMLODIPINE BESYLATE [Concomitant]
  9. FURADANTIN [Suspect]
     Dosage: UNK
     Dates: end: 20111013
  10. LIPANOR [Suspect]
     Dosage: UNK
     Dates: end: 20111013

REACTIONS (14)
  - BLOOD BILIRUBIN INCREASED [None]
  - ASPARTATE AMINOTRANSFERASE INCREASED [None]
  - HEPATIC FIBROSIS [None]
  - BILIRUBIN CONJUGATED INCREASED [None]
  - LIVER FUNCTION TEST ABNORMAL [None]
  - JAUNDICE [None]
  - ABDOMINAL PAIN [None]
  - ALANINE AMINOTRANSFERASE INCREASED [None]
  - CHOLELITHIASIS [None]
  - VOMITING [None]
  - GAMMA-GLUTAMYLTRANSFERASE INCREASED [None]
  - BLOOD ALKALINE PHOSPHATASE INCREASED [None]
  - EPSTEIN-BARR VIRUS TEST POSITIVE [None]
  - EPSTEIN-BARR VIRUS ANTIBODY POSITIVE [None]
